FAERS Safety Report 6635724-9 (Version None)
Quarter: 2010Q1

REPORT INFORMATION
  Report Type: 
  Country: None (occurrence: None)
  Receive Date: 20100311
  Receipt Date: 20100311
  Transmission Date: 20100710
  Serious: Yes (Hospitalization)
  Sender: FDA-Public Use
  Company Number: None

PATIENT
  Age: 34 Year
  Sex: Female
  Weight: 63.5 kg

DRUGS (1)
  1. TRINORINYL 1 TAB UNK [Suspect]
     Indication: CONTRACEPTION
     Dosage: 1 TAB DAILY PO
     Route: 048

REACTIONS (4)
  - DEHYDRATION [None]
  - HYPERTENSION [None]
  - JUGULAR VEIN THROMBOSIS [None]
  - LYMPHADENITIS [None]
